FAERS Safety Report 5130634-0 (Version None)
Quarter: 2006Q4

REPORT INFORMATION
  Report Type: 
  Country: None (occurrence: None)
  Receive Date: 20061019
  Receipt Date: 20061010
  Transmission Date: 20070319
  Serious: Yes (Other)
  Sender: FDA-Public Use
  Company Number: US-KINGPHARMUSA00001-K200601284

PATIENT
  Age: 70 Year
  Sex: Female

DRUGS (1)
  1. ALTACE [Suspect]
     Indication: HYPERTENSION
     Route: 048
     Dates: start: 19960101

REACTIONS (4)
  - ASTHMA [None]
  - BRONCHITIS [None]
  - DRUG RESISTANCE [None]
  - SUPERINFECTION [None]
